FAERS Safety Report 5087889-0 (Version None)
Quarter: 2006Q3

REPORT INFORMATION
  Report Type: 
  Country: None (occurrence: None)
  Receive Date: 20060824
  Receipt Date: 20060404
  Transmission Date: 20061208
  Serious: Yes (Other)
  Sender: FDA-Public Use
  Company Number: JP-NOVOPROD-252678

PATIENT
  Age: 12 Year
  Sex: Male
  Weight: 42 kg

DRUGS (1)
  1. NORDITROPIN [Suspect]
     Indication: CHONDRODYSTROPHY
     Dosage: 10.2 MG, QD
     Route: 058
     Dates: start: 19980402, end: 20040419

REACTIONS (2)
  - FACIAL PALSY [None]
  - TREATMENT NONCOMPLIANCE [None]
